FAERS Safety Report 21912732 (Version 1)
Quarter: 2023Q1

REPORT INFORMATION
  Report Type: Spontaneous
  Country: US (occurrence: US)
  Receive Date: 20230125
  Receipt Date: 20230125
  Transmission Date: 20230417
  Serious: No
  Sender: FDA-Public Use
  Company Number: US-ALLERGAN-2241618US

PATIENT
  Age: 44 Year
  Sex: Female

DRUGS (3)
  1. BOTOX COSMETIC [Suspect]
     Active Substance: ONABOTULINUMTOXINA
     Indication: Skin wrinkling
     Dosage: 53 UNITS, SINGLE
     Dates: start: 20221213, end: 20221213
  2. BOTOX COSMETIC [Suspect]
     Active Substance: ONABOTULINUMTOXINA
     Indication: Skin wrinkling
     Dosage: 53 UNITS, SINGLE
     Dates: start: 20221213, end: 20221213
  3. BOTOX COSMETIC [Suspect]
     Active Substance: ONABOTULINUMTOXINA
     Indication: Skin wrinkling
     Dosage: 53 UNITS, SINGLE
     Dates: start: 20221213, end: 20221213

REACTIONS (2)
  - Heart rate increased [Unknown]
  - Palpitations [Unknown]

NARRATIVE: CASE EVENT DATE: 20221215
